FAERS Safety Report 6499883-3 (Version None)
Quarter: 2009Q4

REPORT INFORMATION
  Report Type: 
  Country: None (occurrence: None)
  Receive Date: 20091214
  Receipt Date: 20091214
  Transmission Date: 20100525
  Serious: Yes (Other)
  Sender: FDA-Public Use
  Company Number: None

PATIENT
  Age: 73 Year
  Sex: Male
  Weight: 86.1834 kg

DRUGS (2)
  1. CHOLESTYRAMINE [Suspect]
     Indication: CROHN'S DISEASE
     Dosage: 3/4 SCOOP WITH 8OZ JUICE OR WAT DAILY AT BEDTIME
     Dates: start: 20090101, end: 20091211
  2. CHOLESTYRAMINE [Suspect]
     Indication: DIARRHOEA
     Dosage: 3/4 SCOOP WITH 8OZ JUICE OR WAT DAILY AT BEDTIME
     Dates: start: 20090101, end: 20091211

REACTIONS (3)
  - ANXIETY [None]
  - DIARRHOEA [None]
  - PRODUCT SOLUBILITY ABNORMAL [None]
